FAERS Safety Report 4879113-6 (Version None)
Quarter: 2006Q1

REPORT INFORMATION
  Report Type: 
  Country: None (occurrence: None)
  Receive Date: 20060112
  Receipt Date: 20060103
  Transmission Date: 20060701
  Serious: Yes (Other)
  Sender: FDA-Public Use
  Company Number: GB-JNJFOC-20060101755

PATIENT
  Age: 60 Year
  Sex: Female

DRUGS (2)
  1. REMINYL [Suspect]
     Route: 048
  2. ANAESTHETIC [Interacting]
     Indication: SURGERY

REACTIONS (6)
  - AGGRESSION [None]
  - CONFUSIONAL STATE [None]
  - DRUG INTERACTION [None]
  - DRUG WITHDRAWAL SYNDROME [None]
  - HALLUCINATION [None]
  - SURGERY [None]
